FAERS Safety Report 8516893-2 (Version None)
Quarter: 2012Q3

REPORT INFORMATION
  Report Type: 
  Country: None (occurrence: None)
  Receive Date: 20120718
  Receipt Date: 20120712
  Transmission Date: 20120928
  Serious: Yes (Other)
  Sender: FDA-Public Use
  Company Number: JP-ELI_LILLY_AND_COMPANY-JP201206002849

PATIENT
  Age: 75 Year
  Sex: Male

DRUGS (2)
  1. FORTEO [Suspect]
     Indication: OSTEOPOROSIS
     Dosage: UNK UNK, EACH MORNING
     Route: 058
     Dates: start: 20120501
  2. FORTEO [Suspect]
     Dosage: UNK
     Route: 058
     Dates: end: 20120712

REACTIONS (3)
  - BONE PAIN [None]
  - INJECTION SITE ERYTHEMA [None]
  - PROSTATE CANCER [None]
